FAERS Safety Report 8989099 (Version 1)
Quarter: 2012Q4

REPORT INFORMATION
  Report Type: Spontaneous
  Country: US (occurrence: None)
  Receive Date: 20121224
  Receipt Date: 20121224
  Transmission Date: 20130627
  Serious: Yes (Other)
  Sender: FDA-Public Use
  Company Number: None

PATIENT
  Age: 76 Year
  Sex: Male
  Weight: 83.3 kg

DRUGS (1)
  1. XANAX [Suspect]

REACTIONS (2)
  - Lethargy [None]
  - Hypercapnia [None]
